FAERS Safety Report 4373095-1 (Version None)
Quarter: 2004Q2

REPORT INFORMATION
  Report Type: 
  Country: None (occurrence: None)
  Receive Date: 20040526
  Receipt Date: 20040514
  Transmission Date: 20050107
  Serious: Yes (Hospitalization)
  Sender: FDA-Public Use
  Company Number: 2004032598

PATIENT
  Age: 86 Year
  Sex: Female

DRUGS (6)
  1. AMLODIPINE [Suspect]
     Indication: HYPERTENSION
     Dosage: 5 MG (1 IN 1 D), ORAL
     Route: 048
  2. ISOSORBIDE DINITRATE [Suspect]
     Indication: ANGINA PECTORIS
     Dosage: ORAL
     Route: 048
  3. MOLSIDOMINE (MOLSIDOMINE) [Suspect]
     Indication: ANGINA PECTORIS
     Dosage: ( 3 IN 1 D), ORAL
     Route: 048
  4. ACEBUTOLOL [Suspect]
     Indication: ANGINA PECTORIS
     Dosage: 200 MG (1 IN 1 D), ORAL
     Route: 048
  5. LYSINE (LYSINE) [Suspect]
     Indication: ILL-DEFINED DISORDER
     Dosage: 160 MG (1 IN 1 D), ORAL
     Route: 048
  6. NICORANDIL (NICORANDIL) [Suspect]
     Indication: ANGINA PECTORIS
     Dosage: 40 MG (2 IN 1 D), ORAL
     Route: 048

REACTIONS (6)
  - ANGINA PECTORIS [None]
  - ASTHENIA [None]
  - BRONCHOSPASM [None]
  - DYSPNOEA [None]
  - OXYGEN SATURATION DECREASED [None]
  - SUPRAVENTRICULAR EXTRASYSTOLES [None]
